FAERS Safety Report 5609175-X (Version None)
Quarter: 2008Q1

REPORT INFORMATION
  Report Type: 
  Country: None (occurrence: None)
  Receive Date: 20080129
  Receipt Date: 20080129
  Transmission Date: 20080703
  Serious: Yes (Other)
  Sender: FDA-Public Use
  Company Number: None

PATIENT
  Age: 53 Year
  Sex: Male

DRUGS (1)
  1. METOPROLOL ER  (EON PHARMACEUTICALS)  50MG/DAY [Suspect]
     Indication: HYPERTENSION
     Dosage: 50MG/DAY  ONE/DAY PO
     Route: 048
     Dates: start: 20071201

REACTIONS (2)
  - DIZZINESS [None]
  - TINNITUS [None]
